FAERS Safety Report 8285939-1 (Version None)
Quarter: 2012Q2

REPORT INFORMATION
  Report Type: 
  Country: None (occurrence: None)
  Receive Date: 20120415
  Receipt Date: 20120405
  Transmission Date: 20120825
  Serious: Yes (Other)
  Sender: FDA-Public Use
  Company Number: JP-VERTEX PHARMACEUTICALS INC.-AE-2012-003623

PATIENT
  Age: 62 Year
  Sex: Male

DRUGS (7)
  1. REBETOL [Concomitant]
     Indication: HEPATITIS C
     Route: 048
     Dates: start: 20120126, end: 20120229
  2. REBETOL [Concomitant]
     Route: 048
     Dates: start: 20120301, end: 20120307
  3. TELAVIC (TELAPREVIR) [Suspect]
     Route: 048
     Dates: start: 20120329
  4. TELAVIC (TELAPREVIR) [Suspect]
     Indication: HEPATITIS C
     Route: 048
     Dates: start: 20120126, end: 20120307
  5. TELAVIC (TELAPREVIR) [Suspect]
     Route: 048
     Dates: start: 20120308
  6. REBETOL [Concomitant]
     Dates: start: 20120308
  7. PEG-INTRON [Concomitant]
     Indication: HEPATITIS C
     Route: 058
     Dates: start: 20120126

REACTIONS (2)
  - ANAEMIA [None]
  - RENAL IMPAIRMENT [None]
